FAERS Safety Report 8914063 (Version 1)
Quarter: 2012Q4

REPORT INFORMATION
  Report Type: 
  Country: US (occurrence: US)
  Receive Date: 20121116
  Receipt Date: 20121116
  Transmission Date: 20130627
  Serious: Yes (Death, Hospitalization, Other)
  Sender: FDA-Public Use
  Company Number: US-CELGENEUS-163-50794-12111509

PATIENT
  Age: 79 Year
  Sex: Male

DRUGS (2)
  1. VIDAZA [Suspect]
     Indication: MDS
     Route: 065
  2. ERYTHROPOIETIN [Suspect]
     Indication: MDS
     Route: 065

REACTIONS (6)
  - Death [Fatal]
  - Sarcoma [Unknown]
  - Muscular weakness [Unknown]
  - Weight decreased [Unknown]
  - Back pain [Unknown]
  - General physical health deterioration [Unknown]
